FAERS Safety Report 23224198 (Version 2)
Quarter: 2024Q1

REPORT INFORMATION
  Report Type: Spontaneous
  Country: GB (occurrence: GB)
  Receive Date: 20231124
  Receipt Date: 20240126
  Transmission Date: 20240410
  Serious: Yes (Hospitalization)
  Sender: FDA-Public Use
  Company Number: GB-PADAGIS-2023PAD01644

PATIENT

DRUGS (3)
  1. MORPHINE SULFATE [Suspect]
     Active Substance: MORPHINE SULFATE
     Indication: Back pain
     Dosage: UNK 10MG/5ML MORPHINE  SOLUTION (200ML IN TOTAL)
     Route: 048
  2. MORPHINE SULFATE [Suspect]
     Active Substance: MORPHINE SULFATE
     Dosage: UNK ( 60 EMPTY PACKS OF MODIFIED RELEASE  MORPHINE)
     Route: 048
  3. TRAMADOL [Concomitant]
     Active Substance: TRAMADOL\TRAMADOL HYDROCHLORIDE
     Indication: Back pain
     Dosage: UNK
     Route: 065

REACTIONS (6)
  - Toxic leukoencephalopathy [Recovering/Resolving]
  - Acute kidney injury [None]
  - Hepatotoxicity [None]
  - Brain injury [Unknown]
  - Respiratory depression [None]
  - Intentional overdose [Unknown]
